FAERS Safety Report 9454406 (Version 2)
Quarter: 2014Q1

REPORT INFORMATION
  Report Type: Spontaneous
  Country: US (occurrence: US)
  Receive Date: 20130812
  Receipt Date: 20140324
  Transmission Date: 20141002
  Serious: Yes (Other)
  Sender: FDA-Public Use
  Company Number: US-PFIZER INC-2013229366

PATIENT
  Age: 65 Year
  Sex: Male

DRUGS (12)
  1. XELJANZ [Suspect]
     Indication: RHEUMATOID ARTHRITIS
     Dosage: 5 MG, 2X/DAY
     Route: 048
     Dates: start: 20130606
  2. XELJANZ [Suspect]
     Dosage: 5 MG, 2X/DAY
     Route: 048
     Dates: start: 20130522, end: 20140303
  3. CENTRUM SILVER ULTRA MEN^S [Concomitant]
     Dosage: UNK
  4. XANAX [Concomitant]
     Dosage: 0.25 MG, UNK
  5. NORVASC [Concomitant]
     Dosage: 5 MG, UNK
  6. METFORMIN HCL [Concomitant]
     Dosage: 500 MG, UNK
  7. ASPIRIN [Concomitant]
     Dosage: 81 MG, UNK
  8. LOVAZA [Concomitant]
     Dosage: 1 G, UNK
  9. TESTOSTERONE CYP [Concomitant]
     Dosage: 200 MG/ML, UNK
  10. PLAVIX [Concomitant]
     Dosage: 75 MG, UNK
  11. ALTACE [Concomitant]
     Dosage: 10 MG, UNK
  12. VYTORIN [Concomitant]
     Dosage: EZETIMIBE (10 MG), SIMVASTATIN (10 MG), UNK

REACTIONS (2)
  - Arthropathy [Unknown]
  - Upper respiratory tract infection [Recovered/Resolved]
